FAERS Safety Report 7215356-4 (Version None)
Quarter: 2011Q1

REPORT INFORMATION
  Report Type: 
  Country: None (occurrence: None)
  Receive Date: 20110107
  Receipt Date: 20110104
  Transmission Date: 20110831
  Serious: Yes (Hospitalization, Other)
  Sender: FDA-Public Use
  Company Number: US-ABBOTT-10P-163-0673853-00

PATIENT
  Sex: Male
  Weight: 74.91 kg

DRUGS (2)
  1. ASACOL [Concomitant]
     Indication: PRODUCT USED FOR UNKNOWN INDICATION
  2. HUMIRA [Suspect]
     Indication: CROHN'S DISEASE
     Dates: start: 20100428

REACTIONS (6)
  - INTESTINAL OBSTRUCTION [None]
  - ABSCESS [None]
  - CROHN'S DISEASE [None]
  - INFECTION [None]
  - RESPIRATORY ARREST [None]
  - HAEMORRHAGE [None]
